FAERS Safety Report 4600379-1 (Version None)
Quarter: 2005Q1

REPORT INFORMATION
  Report Type: 
  Country: None (occurrence: None)
  Receive Date: 20050304
  Receipt Date: 20050222
  Transmission Date: 20050727
  Serious: Yes (Other)
  Sender: FDA-Public Use
  Company Number: 2005035928

PATIENT

DRUGS (2)
  1. ALPRAZOLAM [Suspect]
     Indication: DEPRESSION
     Dosage: BID, INTERVAL: EVERYDAY, ORAL
     Route: 048
     Dates: start: 20000101
  2. CARISOPRODOL [Suspect]
     Indication: ROAD TRAFFIC ACCIDENT
     Dosage: (TID: INTERVAL: EVERYDAY) ORAL
     Route: 048
     Dates: start: 20040101, end: 20041101

REACTIONS (2)
  - DEVELOPMENTAL DELAY [None]
  - DRUG EXPOSURE DURING PREGNANCY [None]
